FAERS Safety Report 14448699 (Version 2)
Quarter: 2018Q3

REPORT INFORMATION
  Report Type: Spontaneous
  Country: US (occurrence: US)
  Receive Date: 20180126
  Receipt Date: 20180718
  Transmission Date: 20181010
  Serious: Yes (Hospitalization, Other)
  Sender: FDA-Public Use
  Company Number: US-DSJP-DSU-2017-140230

PATIENT

DRUGS (1)
  1. BENICAR HCT [Suspect]
     Active Substance: HYDROCHLOROTHIAZIDE\OLMESARTAN MEDOXOMIL
     Indication: PRODUCT USED FOR UNKNOWN INDICATION
     Dosage: 20?12.5 MG, QD
     Route: 048
     Dates: start: 20140710, end: 20170925

REACTIONS (7)
  - Gastrooesophageal reflux disease [Not Recovered/Not Resolved]
  - Sprue-like enteropathy [Recovered/Resolved]
  - Diverticulitis [Not Recovered/Not Resolved]
  - Irritable bowel syndrome [Unknown]
  - Diverticulum [Unknown]
  - Renal impairment [Unknown]
  - Haemorrhoids [Unknown]

NARRATIVE: CASE EVENT DATE: 20150201
